FAERS Safety Report 5496322-6 (Version None)
Quarter: 2007Q4

REPORT INFORMATION
  Report Type: 
  Country: None (occurrence: None)
  Receive Date: 20071025
  Receipt Date: 20070326
  Transmission Date: 20080405
  Serious: No
  Sender: FDA-Public Use
  Company Number: A0644658A

PATIENT
  Age: 82 Year
  Sex: Female

DRUGS (3)
  1. ADVAIR DISKUS 100/50 [Suspect]
     Indication: ASTHMA
     Dosage: 1PUFF TWICE PER DAY
     Route: 055
     Dates: start: 20070201
  2. LIPITOR [Concomitant]
  3. TOPROL-XL [Concomitant]

REACTIONS (3)
  - CHEST PAIN [None]
  - DRUG INEFFECTIVE [None]
  - DYSPNOEA [None]
